FAERS Safety Report 17145110 (Version 1)
Quarter: 2019Q4

REPORT INFORMATION
  Report Type: Spontaneous
  Country: US (occurrence: US)
  Receive Date: 20191212
  Receipt Date: 20191212
  Transmission Date: 20200122
  Serious: Yes (Hospitalization, Disabling, Other)
  Sender: FDA-Public Use
  Company Number: US-SA-2019SA341785

PATIENT
  Age: 73 Year
  Sex: Female
  Weight: 173 kg

DRUGS (34)
  1. GLIPIZIDE XL [Concomitant]
     Active Substance: GLIPIZIDE
     Dosage: 10 MG, QD
  2. GLIPIZIDE XL [Concomitant]
     Active Substance: GLIPIZIDE
     Dosage: 10 MG, UNK
  3. TRESIBA [Concomitant]
     Active Substance: INSULIN DEGLUDEC
     Dosage: 100 U, QD
     Dates: start: 20191010, end: 20191104
  4. HUMALOG [Concomitant]
     Active Substance: INSULIN LISPRO
     Dosage: 80 U, QD
     Dates: start: 20190928, end: 20190929
  5. INSULIN DEGLUDEC [Concomitant]
     Active Substance: INSULIN DEGLUDEC
     Dosage: 90 U, QD
     Dates: start: 20191105, end: 20191106
  6. PLAVIX [Suspect]
     Active Substance: CLOPIDOGREL BISULFATE
     Dosage: 75 MG, QD
     Route: 048
     Dates: start: 20191018, end: 20191018
  7. ACETYLSALICYLIC ACID [Suspect]
     Active Substance: ASPIRIN
     Dosage: 100 MG, UNK
     Route: 048
     Dates: start: 20190927
  8. LOSARTAN. [Concomitant]
     Active Substance: LOSARTAN
     Dosage: 50 MG, QD
  9. HUMALOG [Concomitant]
     Active Substance: INSULIN LISPRO
     Dosage: 18 U, QD
     Dates: start: 20190928
  10. ACETYLSALICYLIC ACID [Suspect]
     Active Substance: ASPIRIN
     Dosage: 100 MG, UNK
     Route: 048
     Dates: start: 20190929, end: 20191017
  11. LEVOTHYROXINE. [Concomitant]
     Active Substance: LEVOTHYROXINE
     Dosage: 0.050 MG, UNK
  12. MIRALAX [Concomitant]
     Active Substance: POLYETHYLENE GLYCOL 3350
     Indication: PROPHYLAXIS
     Dosage: 17 G, QD
     Dates: start: 20190930
  13. INSULIN DEGLUDEC [Concomitant]
     Active Substance: INSULIN DEGLUDEC
     Dosage: 70 U, QD
     Dates: start: 20191107
  14. NORCO [Concomitant]
     Active Substance: ACETAMINOPHEN\HYDROCODONE BITARTRATE
     Dosage: 4 UNK, QD
     Dates: start: 20191031
  15. ACETYLSALICYLIC ACID [Suspect]
     Active Substance: ASPIRIN
     Dosage: 100 MG, UNK
     Route: 048
     Dates: start: 20190928, end: 20190928
  16. LEVOTHYROXINE. [Concomitant]
     Active Substance: LEVOTHYROXINE
     Dosage: 0.050 MG, UNK
  17. METFORMIN [Concomitant]
     Active Substance: METFORMIN HYDROCHLORIDE
     Dosage: 1000 MG, QD
  18. METFORMIN [Concomitant]
     Active Substance: METFORMIN HYDROCHLORIDE
     Dosage: 1000 MG, UNK
  19. ACTOS [Concomitant]
     Active Substance: PIOGLITAZONE HYDROCHLORIDE
     Dosage: 30 MG, QD
  20. ACTOS [Concomitant]
     Active Substance: PIOGLITAZONE HYDROCHLORIDE
     Dosage: 30 MG, UNK
  21. LOSARTAN. [Concomitant]
     Active Substance: LOSARTAN
     Dosage: 50 MG, UNK
  22. PLAVIX [Suspect]
     Active Substance: CLOPIDOGREL BISULFATE
     Dosage: 75 MG, UNK
     Route: 048
     Dates: start: 20190929, end: 20191017
  23. PRAVASTATIN. [Concomitant]
     Active Substance: PRAVASTATIN
     Dosage: 40 MG, QD
  24. INSULIN [Concomitant]
     Active Substance: INSULIN NOS
     Dosage: 8 U, QD
     Dates: start: 20190928, end: 20190928
  25. MULTIHANCE [Concomitant]
     Active Substance: GADOBENATE DIMEGLUMINE
     Dosage: 10 UNK, QD
     Dates: start: 20190927, end: 20190927
  26. ISOVUE [Concomitant]
     Active Substance: IOPAMIDOL
     Dosage: 120 UNK, QD
     Dates: start: 20190927, end: 20190927
  27. ATORVASTATIN [Concomitant]
     Active Substance: ATORVASTATIN
     Dosage: 80 MG, UNK
     Dates: start: 20190927
  28. TRESIBA [Concomitant]
     Active Substance: INSULIN DEGLUDEC
     Dosage: 70 U, UNK
     Dates: start: 20191107
  29. FLUOXETINE [Concomitant]
     Active Substance: FLUOXETINE HYDROCHLORIDE
     Dosage: 20 MG, QD
     Dates: start: 20191003
  30. ATORVASTATIN [Concomitant]
     Active Substance: ATORVASTATIN
     Dosage: 80 MG, QD
     Dates: start: 20190927
  31. PLAVIX [Suspect]
     Active Substance: CLOPIDOGREL BISULFATE
     Dosage: 75 MG, UNK
     Route: 048
     Dates: start: 20190928, end: 20190928
  32. ACETYLSALICYLIC ACID [Suspect]
     Active Substance: ASPIRIN
     Dosage: 100 MG, QD
     Route: 048
     Dates: start: 20191018, end: 20191018
  33. VICTOZA [Concomitant]
     Active Substance: LIRAGLUTIDE
     Dosage: 0.6 MG, QD
     Dates: start: 20190929
  34. TYLENOL [Concomitant]
     Active Substance: ACETAMINOPHEN
     Dosage: 3600 MG, QD
     Dates: start: 20191004

REACTIONS (2)
  - Syncope [Unknown]
  - Ischaemic stroke [Not Recovered/Not Resolved]

NARRATIVE: CASE EVENT DATE: 20190928
